FAERS Safety Report 7202976-6 (Version None)
Quarter: 2010Q4

REPORT INFORMATION
  Report Type: 
  Country: None (occurrence: None)
  Receive Date: 20101229
  Receipt Date: 20101223
  Transmission Date: 20110411
  Serious: Yes (Hospitalization)
  Sender: FDA-Public Use
  Company Number: FR-PFIZER INC-2010178139

PATIENT
  Age: 43 Year
  Sex: Male

DRUGS (2)
  1. ADVIL [Suspect]
     Indication: ORAL HERPES
     Dosage: UNK
     Route: 048
     Dates: start: 20101201, end: 20101203
  2. STRESAM [Suspect]
     Indication: EX-TOBACCO USER
     Dosage: UNK
     Route: 048
     Dates: start: 20101116, end: 20101203

REACTIONS (1)
  - ERYTHEMA MULTIFORME [None]
